FAERS Safety Report 9421217 (Version 1)
Quarter: 2013Q3

REPORT INFORMATION
  Report Type: Spontaneous
  Country: US (occurrence: US)
  Receive Date: 20130725
  Receipt Date: 20130725
  Transmission Date: 20140515
  Serious: Yes (Hospitalization)
  Sender: FDA-Public Use
  Company Number: US-GILEAD-2013-0077577

PATIENT
  Sex: Male

DRUGS (3)
  1. LETAIRIS [Suspect]
     Indication: PRODUCT USED FOR UNKNOWN INDICATION
     Dosage: 5 MG, QD
     Route: 048
     Dates: start: 20130328
  2. COUMADIN                           /00014802/ [Concomitant]
  3. ADCIRCA [Concomitant]

REACTIONS (3)
  - Jaw cyst [Unknown]
  - Acne [Unknown]
  - Mouth cyst [Unknown]
